FAERS Safety Report 17192719 (Version 2)
Quarter: 2020Q2

REPORT INFORMATION
  Report Type: Spontaneous
  Country: US (occurrence: US)
  Receive Date: 20191223
  Receipt Date: 20200424
  Transmission Date: 20200713
  Serious: No
  Sender: FDA-Public Use
  Company Number: US-SA-2019SA297940

PATIENT
  Sex: Male

DRUGS (2)
  1. DUPIXENT [Suspect]
     Active Substance: DUPILUMAB
     Indication: DERMATITIS ATOPIC
  2. DUPIXENT [Suspect]
     Active Substance: DUPILUMAB
     Indication: NEURODERMATITIS
     Dosage: 300 MG, QOW
     Route: 058
     Dates: start: 20191010

REACTIONS (6)
  - Impaired driving ability [Unknown]
  - Ocular discomfort [Unknown]
  - Photophobia [Unknown]
  - Eye pruritus [Unknown]
  - Vision blurred [Unknown]
  - Condition aggravated [Unknown]
